FAERS Safety Report 21297883 (Version 1)
Quarter: 2022Q3

REPORT INFORMATION
  Report Type: Spontaneous
  Country: AU (occurrence: AU)
  Receive Date: 20220906
  Receipt Date: 20220906
  Transmission Date: 20221026
  Serious: Yes (Hospitalization, Other)
  Sender: FDA-Public Use
  Company Number: AU-PFIZER INC-PV202200054191

PATIENT
  Age: 59 Year
  Sex: Female

DRUGS (6)
  1. MYLOTARG [Suspect]
     Active Substance: GEMTUZUMAB OZOGAMICIN
     Indication: Acute myeloid leukaemia
     Dosage: 3 MG/M2, ON DAYS 1, 4 AND 7
     Dates: start: 202109
  2. MYLOTARG [Suspect]
     Active Substance: GEMTUZUMAB OZOGAMICIN
     Dosage: 3 MG/M2, INFUSED OVER 2 HOURS ON DAY 1
  3. CYTARABINE [Suspect]
     Active Substance: CYTARABINE
     Dosage: INITIATED WITH 7+3 (CYTARABINE + IDARUBICIN)
     Dates: start: 202109
  4. CYTARABINE [Suspect]
     Active Substance: CYTARABINE
     Dosage: 3G/M2, BD  D1, 3, 5
  5. CYTARABINE [Suspect]
     Active Substance: CYTARABINE
     Dosage: 2.5G/M2  BD D1, 3, 5
  6. IDARUBICIN HYDROCHLORIDE [Suspect]
     Active Substance: IDARUBICIN HYDROCHLORIDE
     Dosage: INITIATED WITH 7+3 (CYTARABINE + IDARUBICIN)
     Dates: start: 202109

REACTIONS (12)
  - Febrile neutropenia [Recovered/Resolved]
  - Klebsiella bacteraemia [Recovered/Resolved]
  - Streptococcal bacteraemia [Recovered/Resolved]
  - Bacteraemia [Recovered/Resolved]
  - Enterococcal bacteraemia [Recovered/Resolved]
  - Escherichia bacteraemia [Recovered/Resolved]
  - Liver function test abnormal [Unknown]
  - Pyrexia [Not Recovered/Not Resolved]
  - Mucosal inflammation [Unknown]
  - Leukocytosis [Unknown]
  - Nausea [Unknown]
  - Gamma-glutamyltransferase increased [Unknown]
